FAERS Safety Report 20322737 (Version 1)
Quarter: 2022Q1

REPORT INFORMATION
  Report Type: Spontaneous
  Country: US (occurrence: None)
  Receive Date: 20220110
  Receipt Date: 20220110
  Transmission Date: 20220424
  Serious: Yes (Death)
  Sender: FDA-Public Use
  Company Number: None

PATIENT
  Age: 93 Year
  Sex: Male
  Weight: 67.9 kg

DRUGS (2)
  1. SOTROVIMAB [Suspect]
     Active Substance: SOTROVIMAB
     Indication: COVID-19
     Dates: start: 20220109
  2. Sotrovima b [Concomitant]
     Dates: start: 20220109

REACTIONS (10)
  - COVID-19 [None]
  - Hypotension [None]
  - Heart rate irregular [None]
  - White blood cell count increased [None]
  - Procalcitonin increased [None]
  - Blood potassium decreased [None]
  - Blood chloride increased [None]
  - Adjusted calcium decreased [None]
  - Carbon dioxide decreased [None]
  - Asthenia [None]

NARRATIVE: CASE EVENT DATE: 20220110
